FAERS Safety Report 10098707 (Version 1)
Quarter: 2014Q2

REPORT INFORMATION
  Report Type: Spontaneous
  Country: US (occurrence: US)
  Receive Date: 20140423
  Receipt Date: 20140423
  Transmission Date: 20141212
  Serious: No
  Sender: FDA-Public Use
  Company Number: US-TEVA-477271USA

PATIENT
  Age: 43 Year
  Sex: Female
  Weight: 80.81 kg

DRUGS (1)
  1. PARAGARD 380A [Suspect]
     Indication: CONTRACEPTION
     Route: 015
     Dates: end: 20140421

REACTIONS (2)
  - Expired device used [Recovered/Resolved]
  - Medical device complication [Not Recovered/Not Resolved]
